FAERS Safety Report 21947009 (Version 2)
Quarter: 2023Q1

REPORT INFORMATION
  Report Type: Spontaneous
  Country: US (occurrence: US)
  Receive Date: 20230202
  Receipt Date: 20230209
  Transmission Date: 20230418
  Serious: Yes (Other)
  Sender: FDA-Public Use
  Company Number: US-BOIRON-202300033

PATIENT
  Age: 76 Year
  Sex: Female
  Weight: 63.492 kg

DRUGS (1)
  1. CANTHARIS 30C [Suspect]
     Active Substance: LYTTA VESICATORIA
     Indication: Prophylaxis urinary tract infection
     Dosage: 5 DOSAGE FORM, ONCE
     Route: 060
     Dates: start: 20221204, end: 20221204

REACTIONS (6)
  - Poisoning [Not Recovered/Not Resolved]
  - Urinary tract infection [Not Recovered/Not Resolved]
  - Malaise [Not Recovered/Not Resolved]
  - Nausea [Not Recovered/Not Resolved]
  - Abdominal pain upper [Not Recovered/Not Resolved]
  - Gastric disorder [Not Recovered/Not Resolved]

NARRATIVE: CASE EVENT DATE: 20221204
